FAERS Safety Report 7009851-0 (Version None)
Quarter: 2010Q3

REPORT INFORMATION
  Report Type: 
  Country: None (occurrence: None)
  Receive Date: 20100923
  Receipt Date: 20100915
  Transmission Date: 20110219
  Serious: Yes (Hospitalization)
  Sender: FDA-Public Use
  Company Number: JP-ROCHE-728386

PATIENT
  Age: 68 Year
  Sex: Female

DRUGS (2)
  1. PEGASYS [Suspect]
     Route: 058
     Dates: start: 20071001
  2. COPEGUS [Suspect]
     Route: 048
     Dates: start: 20071001

REACTIONS (1)
  - NEPHROTIC SYNDROME [None]
